FAERS Safety Report 5904353-4 (Version None)
Quarter: 2008Q4

REPORT INFORMATION
  Report Type: 
  Country: None (occurrence: None)
  Receive Date: 20081001
  Receipt Date: 20080923
  Transmission Date: 20090506
  Serious: Yes (Hospitalization)
  Sender: FDA-Public Use
  Company Number: PHHY2008GB21169

PATIENT
  Sex: Male

DRUGS (3)
  1. CLOZARIL [Suspect]
     Indication: SCHIZOPHRENIA
     Dosage: 550 MG/DAY
     Route: 048
     Dates: start: 19940524
  2. VALPROATE SODIUM [Concomitant]
     Dosage: 1 G, BID
     Route: 048
  3. VENLAFAXINE HCL [Concomitant]
     Dosage: 225 MG/DAY
     Route: 048

REACTIONS (2)
  - GASTRITIS [None]
  - GASTROINTESTINAL HAEMORRHAGE [None]
